FAERS Safety Report 6747106-X (Version None)
Quarter: 2010Q2

REPORT INFORMATION
  Report Type: 
  Country: None (occurrence: None)
  Receive Date: 20100528
  Receipt Date: 20100522
  Transmission Date: 20101027
  Serious: Yes (Other)
  Sender: FDA-Public Use
  Company Number: CN-PFIZER INC-2010064543

PATIENT

DRUGS (2)
  1. DIFLUCAN [Suspect]
  2. HEPARIN [Suspect]

REACTIONS (1)
  - HAEMORRHAGE [None]
